FAERS Safety Report 21208241 (Version 1)
Quarter: 2022Q3

REPORT INFORMATION
  Report Type: Report from Study
  Country: DE (occurrence: DE)
  Receive Date: 20220812
  Receipt Date: 20220812
  Transmission Date: 20221027
  Serious: No
  Sender: FDA-Public Use
  Company Number: DE-BAXTER-2022BAX017279

PATIENT
  Age: 62 Year
  Sex: Female
  Weight: 50 kg

DRUGS (5)
  1. AMINO ACIDS\DEXTROSE\ELECTROLYTES NOS\SOYBEAN OIL [Suspect]
     Active Substance: AMINO ACIDS\DEXTROSE\ELECTROLYTES NOS\SOYBEAN OIL
     Indication: Parenteral nutrition
     Dosage: 1085 MILLILITERS (ML), ONCE DAILY ADMINISTERED CENTRAL VENOUS ROUTE
     Route: 042
     Dates: start: 20220504
  2. VITAMINS [Suspect]
     Active Substance: VITAMINS
     Indication: Parenteral nutrition
     Dosage: 10 MILLILITERS (ML), ONCE DAILY ADMINISTERED CENTRAL VENOUS ROUTE
     Route: 042
  3. ERGOCALCIFEROL\PHYTONADIONE\RETINOL\TOCOPHEROL [Suspect]
     Active Substance: ERGOCALCIFEROL\PHYTONADIONE\RETINOL\TOCOPHEROL
     Indication: Parenteral nutrition
     Dosage: 10 MILLILITERS (ML), ONCE DAILY ADMINISTERED CENTRAL VENOUS ROUTE
     Route: 042
  4. ELECTROLYTES NOS\MINERALS [Suspect]
     Active Substance: ELECTROLYTES NOS\MINERALS
     Indication: Parenteral nutrition
     Dosage: 10 MILLILITERS (ML), ONCE DAILY ADMINISTERED CENTRAL VENOUS ROUTE
     Route: 042
  5. UNSPECIFIED INGREDIENT [Suspect]
     Active Substance: UNSPECIFIED INGREDIENT
     Route: 065

REACTIONS (1)
  - General physical health deterioration [Unknown]
